FAERS Safety Report 6338436-4 (Version None)
Quarter: 2009Q3

REPORT INFORMATION
  Report Type: 
  Country: None (occurrence: None)
  Receive Date: 20090901
  Receipt Date: 20090817
  Transmission Date: 20100115
  Serious: Yes (Death, Hospitalization)
  Sender: FDA-Public Use
  Company Number: 2009AL002547

PATIENT
  Age: 65 Year
  Sex: Female
  Weight: 70.3075 kg

DRUGS (31)
  1. DIGOXIN [Suspect]
     Dosage: 0,25MG, DAILY, PO
     Route: 048
     Dates: start: 20050101, end: 20090102
  2. MONOPRIL [Concomitant]
  3. HYDROXYUREA [Concomitant]
  4. COUMADIN [Concomitant]
  5. FOSINOPRIL SODIUM [Concomitant]
  6. SPORANOX [Concomitant]
  7. FUROSEMIDE [Concomitant]
  8. GLYBURIDE [Concomitant]
  9. ASCENSIA [Concomitant]
  10. ISOSORBIDE [Concomitant]
  11. SPIRONOLACTONE [Concomitant]
  12. COREG [Concomitant]
  13. FOSAMAX [Concomitant]
  14. NITROGLYCERIN [Concomitant]
  15. SIMVASTATIN [Concomitant]
  16. CARVEDILOL [Concomitant]
  17. NEXIUM [Concomitant]
  18. FLONASE [Concomitant]
  19. CALCIUM [Concomitant]
  20. NITROGLYCERIN [Concomitant]
  21. XANAX [Concomitant]
  22. TYLENOL (CAPLET) [Concomitant]
  23. SIMETHICONE [Concomitant]
  24. PRINIVIL [Concomitant]
  25. PHENERGAN [Concomitant]
  26. IBUPROFEN [Concomitant]
  27. CHLORPHENIRAMINE MALEATE [Concomitant]
  28. ALPRAZOLAM [Concomitant]
  29. LOPERAMIDE [Concomitant]
  30. FLUTICASONE PROPIONATE [Concomitant]
  31. NOVOLIN R [Concomitant]

REACTIONS (14)
  - ASTHENIA [None]
  - ATRIAL FIBRILLATION [None]
  - BRADYCARDIA [None]
  - CORONARY ARTERY DISEASE [None]
  - ECONOMIC PROBLEM [None]
  - HIATUS HERNIA [None]
  - HYPERTENSION [None]
  - HYPOTENSION [None]
  - ILL-DEFINED DISORDER [None]
  - MITRAL VALVE STENOSIS [None]
  - MULTIPLE INJURIES [None]
  - ROAD TRAFFIC ACCIDENT [None]
  - SURGERY [None]
  - THERAPEUTIC AGENT TOXICITY [None]
